FAERS Safety Report 19988109 (Version 2)
Quarter: 2021Q4

REPORT INFORMATION
  Report Type: Spontaneous
  Country: US (occurrence: US)
  Receive Date: 20211023
  Receipt Date: 20211115
  Transmission Date: 20220303
  Serious: No
  Sender: FDA-Public Use
  Company Number: US-BIOGEN-2021BI01022259

PATIENT
  Age: 45 Year
  Sex: Male

DRUGS (2)
  1. PLEGRIDY [Suspect]
     Active Substance: PEGINTERFERON BETA-1A
     Indication: Multiple sclerosis
     Route: 058
     Dates: start: 20210515
  2. PLEGRIDY [Suspect]
     Active Substance: PEGINTERFERON BETA-1A
     Route: 058
     Dates: start: 20210612

REACTIONS (10)
  - Product dose omission issue [Unknown]
  - Mobility decreased [Not Recovered/Not Resolved]
  - Balance disorder [Unknown]
  - COVID-19 [Unknown]
  - Gait disturbance [Unknown]
  - Head injury [Unknown]
  - Fall [Recovered/Resolved]
  - Influenza like illness [Unknown]
  - Chills [Recovered/Resolved]
  - Pyrexia [Recovered/Resolved]

NARRATIVE: CASE EVENT DATE: 20210613
